FAERS Safety Report 20572351 (Version 1)
Quarter: 2022Q1

REPORT INFORMATION
  Report Type: Spontaneous
  Country: US (occurrence: US)
  Receive Date: 20220309
  Receipt Date: 20220309
  Transmission Date: 20220423
  Serious: No
  Sender: FDA-Public Use
  Company Number: US-BEH-2022142969

PATIENT
  Sex: Female

DRUGS (7)
  1. HIZENTRA [Suspect]
     Active Substance: HUMAN IMMUNOGLOBULIN G
     Indication: Immunodeficiency common variable
     Dosage: 35 MILLILITER (7 GRAM), QW
     Route: 058
     Dates: start: 20180918
  2. BUDESONIDE [Concomitant]
     Active Substance: BUDESONIDE
  3. CALCIUM [Concomitant]
     Active Substance: CALCIUM
  4. HERBALS\LINSEED OIL [Concomitant]
     Active Substance: HERBALS\LINSEED OIL
     Dosage: 1000 MILLIGRAM
  5. MINIVELLE [Concomitant]
     Active Substance: ESTRADIOL
     Dosage: 0.037 MILLIGRAM
  6. VITAMINS [Concomitant]
     Active Substance: VITAMINS
  7. PROGESTERONE [Concomitant]
     Active Substance: PROGESTERONE
     Dosage: 100 MILLIGRAM

REACTIONS (1)
  - Sinusitis [Unknown]
